FAERS Safety Report 5843136-0 (Version None)
Quarter: 2008Q3

REPORT INFORMATION
  Report Type: 
  Country: None (occurrence: None)
  Receive Date: 20080808
  Receipt Date: 20080724
  Transmission Date: 20090109
  Serious: Yes (Hospitalization)
  Sender: FDA-Public Use
  Company Number: 2008S1013126

PATIENT
  Age: 65 Year
  Sex: Male

DRUGS (1)
  1. OMEPRAZOLE [Suspect]
     Indication: DRUG USE FOR UNKNOWN INDICATION
     Dosage: 20 MG ORAL
     Route: 048
     Dates: start: 20070101, end: 20080101

REACTIONS (2)
  - CONVULSION [None]
  - HYPONATRAEMIA [None]
